FAERS Safety Report 10011035 (Version 1)
Quarter: 2014Q1

REPORT INFORMATION
  Report Type: Spontaneous
  Country: FR (occurrence: None)
  Receive Date: 20140312
  Receipt Date: 20140312
  Transmission Date: 20141002
  Serious: Yes (Other)
  Sender: FDA-Public Use
  Company Number: NL01PV14.35514

PATIENT
  Age: 31 Year
  Sex: Female

DRUGS (5)
  1. ZOLPIDEM TABLETS [Suspect]
     Indication: PRODUCT USED FOR UNKNOWN INDICATION
  2. PARACETAMOL (PARACETAMOL) [Suspect]
  3. TRAMADOL (TRAMADOL) [Suspect]
     Indication: PRODUCT USED FOR UNKNOWN INDICATION
  4. BROMAZEPAM (BROMAZEPAM) [Suspect]
     Indication: PRODUCT USED FOR UNKNOWN INDICATION
  5. CETIRIZINE (CETIRIZINE) [Suspect]
     Indication: PRODUCT USED FOR UNKNOWN INDICATION

REACTIONS (1)
  - Drug-induced liver injury [None]
